FAERS Safety Report 15785336 (Version 7)
Quarter: 2022Q2

REPORT INFORMATION
  Report Type: Spontaneous
  Country: US (occurrence: US)
  Receive Date: 20190103
  Receipt Date: 20220502
  Transmission Date: 20220721
  Serious: No
  Sender: FDA-Public Use
  Company Number: US-PFIZER INC-2018533868

PATIENT
  Age: 46 Year
  Sex: Female

DRUGS (3)
  1. LYRICA [Suspect]
     Active Substance: PREGABALIN
     Dosage: UNK (TOOK ONLY TWO OF 75)
  2. LYRICA [Suspect]
     Active Substance: PREGABALIN
     Dosage: 4 DF, 1X/DAY, (4 TABLETS AT NIGHT)
  3. LYRICA [Suspect]
     Active Substance: PREGABALIN
     Dosage: 600 MG, 1X/DAY (4 CAPSULE(S) ORAL AT BED TIME)
     Route: 048

REACTIONS (7)
  - Pain [Not Recovered/Not Resolved]
  - Somnolence [Unknown]
  - Snoring [Unknown]
  - Insomnia [Unknown]
  - Intentional product misuse [Unknown]
  - Migraine [Unknown]
  - Fatigue [Unknown]

NARRATIVE: CASE EVENT DATE: 20181201
